FAERS Safety Report 15443847 (Version 1)
Quarter: 2018Q3

REPORT INFORMATION
  Report Type: Spontaneous
  Country: ZA (occurrence: ZA)
  Receive Date: 20180928
  Receipt Date: 20180928
  Transmission Date: 20181010
  Serious: Yes (Hospitalization)
  Sender: FDA-Public Use
  Company Number: ZA-PFIZER INC-2018367531

PATIENT
  Age: 67 Year
  Sex: Male

DRUGS (1)
  1. INSPRA [Suspect]
     Active Substance: EPLERENONE
     Dosage: UNK

REACTIONS (1)
  - Cardiac failure [Recovered/Resolved]
